FAERS Safety Report 15717478 (Version 1)
Quarter: 2018Q4

REPORT INFORMATION
  Report Type: Spontaneous
  Country: JO (occurrence: JO)
  Receive Date: 20181213
  Receipt Date: 20181213
  Transmission Date: 20190205
  Serious: Yes (Hospitalization)
  Sender: FDA-Public Use
  Company Number: JO-IGSA-SR10007441

PATIENT
  Age: 33 Year
  Sex: Male

DRUGS (1)
  1. KOATE -DVI [Suspect]
     Active Substance: ANTIHEMOPHILIC FACTOR HUMAN
     Indication: FACTOR VIII DEFICIENCY
     Dosage: UNK

REACTIONS (4)
  - Drug ineffective [Unknown]
  - Walking disability [Unknown]
  - Haemorrhage [Unknown]
  - Pain [Unknown]
